FAERS Safety Report 10244678 (Version 1)
Quarter: 2014Q2

REPORT INFORMATION
  Report Type: Spontaneous
  Country: FR (occurrence: FR)
  Receive Date: 20140618
  Receipt Date: 20140618
  Transmission Date: 20141212
  Serious: Yes (Other)
  Sender: FDA-Public Use
  Company Number: FR-GLAXOSMITHKLINE-B1004457A

PATIENT
  Age: 35 Year
  Sex: Male

DRUGS (5)
  1. TAFINLAR [Suspect]
     Indication: METASTATIC MALIGNANT MELANOMA
     Dosage: 150MG TWICE PER DAY
     Route: 048
     Dates: start: 20140124
  2. KEPPRA [Concomitant]
     Route: 065
  3. PARACETAMOL [Concomitant]
     Route: 065
  4. CORTANCYL [Concomitant]
     Route: 065
  5. URBANYL [Concomitant]
     Route: 065

REACTIONS (6)
  - Toxic skin eruption [Not Recovered/Not Resolved]
  - Toxic skin eruption [Not Recovered/Not Resolved]
  - Cyst [Not Recovered/Not Resolved]
  - Rosacea [Not Recovered/Not Resolved]
  - Dermatitis acneiform [Not Recovered/Not Resolved]
  - Palmar-plantar erythrodysaesthesia syndrome [Not Recovered/Not Resolved]
